FAERS Safety Report 21760221 (Version 1)
Quarter: 2022Q4

REPORT INFORMATION
  Report Type: Report from Study
  Country: US (occurrence: US)
  Receive Date: 20221221
  Receipt Date: 20221221
  Transmission Date: 20230113
  Serious: No
  Sender: FDA-Public Use
  Company Number: US-ABBVIE-4229856

PATIENT
  Sex: Female

DRUGS (3)
  1. HUMIRA [Suspect]
     Active Substance: ADALIMUMAB
     Indication: Rheumatoid arthritis
     Dosage: CITRATE FREE
     Route: 058
  2. HUMIRA [Suspect]
     Active Substance: ADALIMUMAB
     Dosage: CITRATE FREE
     Route: 058
     Dates: start: 20220622
  3. METHOTREXATE [Concomitant]
     Active Substance: METHOTREXATE
     Indication: Product used for unknown indication

REACTIONS (9)
  - SARS-CoV-2 test positive [Recovered/Resolved]
  - Drug ineffective [Unknown]
  - Mobility decreased [Unknown]
  - Rash papular [Recovering/Resolving]
  - Joint stiffness [Unknown]
  - Localised infection [Recovering/Resolving]
  - Inflammation [Recovering/Resolving]
  - Osteopenia [Recovering/Resolving]
  - Arthralgia [Not Recovered/Not Resolved]
